FAERS Safety Report 20227526 (Version 4)
Quarter: 2022Q1

REPORT INFORMATION
  Report Type: Spontaneous
  Country: JP (occurrence: JP)
  Receive Date: 20211224
  Receipt Date: 20220107
  Transmission Date: 20220423
  Serious: Yes (Death, Hospitalization, Other)
  Sender: FDA-Public Use
  Company Number: JP-ASTELLAS-2021JP024424

PATIENT
  Age: 7 Decade
  Sex: Male

DRUGS (3)
  1. PADCEV [Suspect]
     Active Substance: ENFORTUMAB VEDOTIN-EJFV
     Indication: Transitional cell carcinoma
     Dosage: UNK UNK, ONCE WEEKLY
     Route: 041
     Dates: start: 20211201, end: 20211201
  2. PADCEV [Suspect]
     Active Substance: ENFORTUMAB VEDOTIN-EJFV
     Dosage: UNK UNK, ONCE WEEKLY
     Route: 041
     Dates: start: 20211208, end: 20211208
  3. PADCEV [Suspect]
     Active Substance: ENFORTUMAB VEDOTIN-EJFV
     Dosage: UNK UNK, ONCE WEEKLY
     Route: 041
     Dates: start: 20211215, end: 20211215

REACTIONS (9)
  - Cardiac failure [Fatal]
  - Renal impairment [Recovering/Resolving]
  - Neutropenia [Recovering/Resolving]
  - Myelosuppression [Unknown]
  - Abdominal discomfort [Unknown]
  - Haemoglobin decreased [Unknown]
  - Alopecia [Unknown]
  - Leukopenia [Unknown]
  - Febrile neutropenia [Fatal]

NARRATIVE: CASE EVENT DATE: 20211201
